FAERS Safety Report 18132318 (Version 2)
Quarter: 2020Q3

REPORT INFORMATION
  Report Type: Spontaneous
  Country: CA (occurrence: CA)
  Receive Date: 20200811
  Receipt Date: 20200824
  Transmission Date: 20201103
  Serious: Yes (Life-Threatening, Hospitalization)
  Sender: FDA-Public Use
  Company Number: CA-TEVA-2020-CA-1811342

PATIENT
  Age: 4 Year
  Sex: Female
  Weight: 17 kg

DRUGS (41)
  1. METHOTREXATE. [Suspect]
     Active Substance: METHOTREXATE
     Indication: ACUTE MYELOID LEUKAEMIA
     Route: 042
  2. AMLODIPINE [Concomitant]
     Active Substance: AMLODIPINE BESYLATE
  3. NIFEDIPINE. [Concomitant]
     Active Substance: NIFEDIPINE
  4. VITAMIN D3 [Concomitant]
     Active Substance: CHOLECALCIFEROL
  5. CICLOSPORIN [Concomitant]
     Active Substance: CYCLOSPORINE
  6. DIMENHYDRINATE. [Concomitant]
     Active Substance: DIMENHYDRINATE
  7. LEVOFLOXACIN. [Concomitant]
     Active Substance: LEVOFLOXACIN
  8. BUSULFAN. [Suspect]
     Active Substance: BUSULFAN
     Route: 042
  9. FLUCONAZOLE. [Concomitant]
     Active Substance: FLUCONAZOLE
  10. OXYBUTYNINE?5 ? TAB 5MG [Concomitant]
  11. PENTAMIDINE ISETHIONATE INJ 300MG/VIAL BP [Concomitant]
  12. VITAMIN D3 [Concomitant]
     Active Substance: CHOLECALCIFEROL
  13. BUSULFAN. [Suspect]
     Active Substance: BUSULFAN
     Route: 042
  14. BUSULFAN. [Suspect]
     Active Substance: BUSULFAN
     Route: 042
  15. ACETAMINOPHEN. [Concomitant]
     Active Substance: ACETAMINOPHEN
  16. CALCIUM + MAGNESIUM WITH VITAMIN D [Concomitant]
  17. DEXAMETHASONE. [Concomitant]
     Active Substance: DEXAMETHASONE
  18. ONDANSETRON [Concomitant]
     Active Substance: ONDANSETRON
  19. TRANEXAMIC ACID. [Concomitant]
     Active Substance: TRANEXAMIC ACID
  20. VANCOMYCIN [Concomitant]
     Active Substance: VANCOMYCIN
  21. CYCLOPHOSPHAMIDE. [Suspect]
     Active Substance: CYCLOPHOSPHAMIDE
     Indication: ACUTE MYELOID LEUKAEMIA
     Route: 042
  22. DIPHENHYDRAMINE. [Concomitant]
     Active Substance: DIPHENHYDRAMINE
  23. FUROSEMIDE. [Concomitant]
     Active Substance: FUROSEMIDE
  24. LORAZEPAM. [Concomitant]
     Active Substance: LORAZEPAM
  25. MORPHINE SULFATE INJ USP [Concomitant]
     Active Substance: MORPHINE SULFATE
  26. NYSTATIN. [Concomitant]
     Active Substance: NYSTATIN
  27. RANITIDINE. [Concomitant]
     Active Substance: RANITIDINE
  28. BUSULFAN. [Suspect]
     Active Substance: BUSULFAN
     Indication: ACUTE MYELOID LEUKAEMIA
     Route: 042
  29. AMPHOTERICIN B. [Concomitant]
     Active Substance: AMPHOTERICIN B
  30. LEVETIRACETAM. [Concomitant]
     Active Substance: LEVETIRACETAM
  31. MESNA. [Concomitant]
     Active Substance: MESNA
  32. NALOXONE [Concomitant]
     Active Substance: NALOXONE
  33. POLYETHYLENE GLYCOL [Concomitant]
     Active Substance: POLYETHYLENE GLYCOLS
  34. PROTAMINE SULFATE INJECTION, USP [Concomitant]
     Active Substance: PROTAMINE SULFATE
  35. URSODEOXYCHOLIC ACID [Concomitant]
     Active Substance: URSODIOL
  36. ACYCLOVIR. [Concomitant]
     Active Substance: ACYCLOVIR
  37. CEFTAZIDIME. [Concomitant]
     Active Substance: CEFTAZIDIME
  38. MEROPENEM. [Concomitant]
     Active Substance: MEROPENEM
  39. MYCOPHENOLATE MOFETIL. [Concomitant]
     Active Substance: MYCOPHENOLATE MOFETIL
  40. TOBRAMYCIN. [Concomitant]
     Active Substance: TOBRAMYCIN
  41. METOCLOPRAMIDE. [Concomitant]
     Active Substance: METOCLOPRAMIDE

REACTIONS (3)
  - Aplastic anaemia [Recovered/Resolved]
  - Mucosal inflammation [Recovered/Resolved]
  - Transfusion [Recovered/Resolved]
